FAERS Safety Report 16802045 (Version 2)
Quarter: 2019Q4

REPORT INFORMATION
  Report Type: Spontaneous
  Country: US (occurrence: US)
  Receive Date: 20190912
  Receipt Date: 20191018
  Transmission Date: 20200122
  Serious: Yes (Other)
  Sender: FDA-Public Use
  Company Number: US-GE HEALTHCARE LIFE SCIENCES-2019CSU004612

PATIENT
  Age: 44 Year
  Sex: Female
  Weight: 105 kg

DRUGS (4)
  1. OMNIPAQUE [Suspect]
     Active Substance: IOHEXOL
     Indication: PELVIC PAIN
  2. OMNIPAQUE [Suspect]
     Active Substance: IOHEXOL
     Indication: ABDOMINAL PAIN UPPER
  3. OMNIPAQUE [Suspect]
     Active Substance: IOHEXOL
     Indication: COMPUTERISED TOMOGRAM ABDOMEN
     Dosage: 125 ML, SINGLE
     Route: 042
     Dates: start: 20190830, end: 20190830
  4. OMNIPAQUE [Suspect]
     Active Substance: IOHEXOL
     Indication: COMPUTERISED TOMOGRAM PELVIS

REACTIONS (8)
  - Sneezing [Recovering/Resolving]
  - Cough [Recovering/Resolving]
  - Rhinorrhoea [Recovering/Resolving]
  - Abdominal pain [Recovering/Resolving]
  - Eye swelling [Recovering/Resolving]
  - Lacrimation increased [Recovering/Resolving]
  - Ear discomfort [Recovering/Resolving]
  - Nasal congestion [Recovering/Resolving]

NARRATIVE: CASE EVENT DATE: 20190830
